FAERS Safety Report 14106915 (Version 1)
Quarter: 2017Q4

REPORT INFORMATION
  Report Type: Spontaneous
  Country: FR (occurrence: FR)
  Receive Date: 20171019
  Receipt Date: 20171019
  Transmission Date: 20180321
  Serious: Yes (Life-Threatening)
  Sender: FDA-Public Use
  Company Number: PHHY2017FR152505

PATIENT
  Age: 43 Year
  Sex: Female

DRUGS (2)
  1. ZYKADIA [Suspect]
     Active Substance: CERITINIB
     Indication: LUNG NEOPLASM MALIGNANT
     Dosage: 600 MG, QD
     Route: 048
     Dates: start: 20170515, end: 20170816
  2. ZYKADIA [Suspect]
     Active Substance: CERITINIB
     Dosage: RESUMED AT LOWER DOSE
     Route: 048
     Dates: start: 20170830

REACTIONS (6)
  - Acute kidney injury [Recovered/Resolved]
  - Pleural effusion [Recovered/Resolved]
  - Acute pulmonary oedema [Recovered/Resolved]
  - Hepatocellular injury [Recovering/Resolving]
  - Pericardial effusion [Recovered/Resolved]
  - Cardiac tamponade [Recovered/Resolved]

NARRATIVE: CASE EVENT DATE: 20170816
